FAERS Safety Report 26043450 (Version 1)
Quarter: 2025Q4

REPORT INFORMATION
  Report Type: Spontaneous
  Country: EU (occurrence: EU)
  Receive Date: 20251113
  Receipt Date: 20251113
  Transmission Date: 20260118
  Serious: Yes (Hospitalization)
  Sender: TEVA
  Company Number: None

PATIENT
  Age: 40 Year
  Sex: Female
  Weight: 83.5 kg

DRUGS (2)
  1. DOXORUBICIN [Suspect]
     Active Substance: DOXORUBICIN
     Indication: Breast cancer
     Route: 042
     Dates: start: 20250630, end: 20250630
  2. CYCLOPHOSPHAMIDE [Suspect]
     Active Substance: CYCLOPHOSPHAMIDE
     Indication: Breast cancer
     Route: 042
     Dates: start: 20250630, end: 20250630

REACTIONS (4)
  - Breast necrosis [Recovered/Resolved with Sequelae]
  - Mastectomy [Recovered/Resolved with Sequelae]
  - Drug monitoring procedure not performed [Recovered/Resolved with Sequelae]
  - Infusion site extravasation [Recovered/Resolved with Sequelae]

NARRATIVE: CASE EVENT DATE: 20250630
